FAERS Safety Report 20087264 (Version 2)
Quarter: 2021Q4

REPORT INFORMATION
  Report Type: Report from Study
  Country: CA (occurrence: CA)
  Receive Date: 20211118
  Receipt Date: 20211224
  Transmission Date: 20220303
  Serious: Yes (Hospitalization, Other)
  Sender: FDA-Public Use
  Company Number: CA-GLAXOSMITHKLINE-CA2021233826

PATIENT
  Age: 81 Year
  Sex: Female

DRUGS (2)
  1. MEPOLIZUMAB [Suspect]
     Active Substance: MEPOLIZUMAB
     Indication: Asthma
     Dosage: 100 MG, Z (EVERY 4 WEEKS)
     Route: 058
     Dates: start: 20181108
  2. MEPOLIZUMAB [Suspect]
     Active Substance: MEPOLIZUMAB
     Dosage: 100 MG Z(EVERY 4WEEKS)
     Route: 058
     Dates: start: 20181108

REACTIONS (6)
  - COVID-19 [Unknown]
  - Spinal fracture [Unknown]
  - Hospitalisation [Unknown]
  - Blood pressure increased [Unknown]
  - Injection site bruising [Unknown]
  - Asthma [Unknown]

NARRATIVE: CASE EVENT DATE: 20211112
